FAERS Safety Report 12626813 (Version 2)
Quarter: 2016Q3

REPORT INFORMATION
  Report Type: Spontaneous
  Country: DE (occurrence: DE)
  Receive Date: 20160805
  Receipt Date: 20160902
  Transmission Date: 20161109
  Serious: Yes (Other)
  Sender: FDA-Public Use
  Company Number: DE-SYNTHON BV-NL01PV16_41573

PATIENT
  Age: 77 Year
  Sex: Male

DRUGS (6)
  1. TAMSULOSIN- ABZ [Suspect]
     Active Substance: TAMSULOSIN
     Indication: BENIGN PROSTATIC HYPERPLASIA
     Dosage: 0.4 MG, UNK (HARD CAPSULE MODIFIED RELEASE)
     Route: 048
     Dates: start: 201604
  2. TAMSULOSIN- ABZ [Suspect]
     Active Substance: TAMSULOSIN
     Dosage: 0.4 MG, UNK (HARD CAPSULE)
     Route: 048
  3. BISOPROLOL [Concomitant]
     Active Substance: BISOPROLOL
     Dosage: 2.5 MG, UNK
  4. VALSARTAN. [Concomitant]
     Active Substance: VALSARTAN
     Dosage: 80 MG, UNK
  5. TORASEMID AL [Concomitant]
     Active Substance: TORSEMIDE
     Dosage: 5 MG, QD (TORASEMID AL 10 MG)
  6. ASPIRIN. [Concomitant]
     Active Substance: ASPIRIN
     Dosage: 100 MG, UNK

REACTIONS (4)
  - Myocardial infarction [Unknown]
  - Product formulation issue [Unknown]
  - Drug ineffective [Unknown]
  - Dyspnoea [Unknown]

NARRATIVE: CASE EVENT DATE: 2012
